FAERS Safety Report 21011633 (Version 3)
Quarter: 2022Q3

REPORT INFORMATION
  Report Type: Spontaneous
  Country: GB (occurrence: GB)
  Receive Date: 20220627
  Receipt Date: 20220719
  Transmission Date: 20221027
  Serious: Yes (Hospitalization, Other)
  Sender: FDA-Public Use
  Company Number: GB-MYLANLABS-2022M1047581

PATIENT
  Age: 44 Year
  Sex: Female

DRUGS (4)
  1. CLOZARIL [Suspect]
     Active Substance: CLOZAPINE
     Indication: Schizophrenia
     Dosage: UNK
     Route: 048
     Dates: start: 20081105
  2. CLOZARIL [Suspect]
     Active Substance: CLOZAPINE
     Dosage: UNK
     Route: 048
     Dates: start: 20220622
  3. CLOZARIL [Suspect]
     Active Substance: CLOZAPINE
     Dosage: 175 MILLIGRAM, QD (75MG MANE, 100MG NOCTE )
     Route: 065
  4. LITHIUM [Concomitant]
     Active Substance: LITHIUM
     Dosage: UNK
     Route: 065

REACTIONS (13)
  - Malaise [Not Recovered/Not Resolved]
  - Schizophrenia [Unknown]
  - Therapy interrupted [Unknown]
  - White blood cell count increased [Recovered/Resolved]
  - Anaemia [Not Recovered/Not Resolved]
  - Red blood cell count decreased [Not Recovered/Not Resolved]
  - Haematocrit decreased [Not Recovered/Not Resolved]
  - Mean cell haemoglobin concentration increased [Not Recovered/Not Resolved]
  - Neutrophil count increased [Recovered/Resolved]
  - Eosinophil count increased [Recovered/Resolved]
  - Red cell distribution width abnormal [Not Recovered/Not Resolved]
  - Mean platelet volume abnormal [Not Recovered/Not Resolved]
  - Infection [Unknown]

NARRATIVE: CASE EVENT DATE: 20220530
